FAERS Safety Report 14220589 (Version 3)
Quarter: 2017Q4

REPORT INFORMATION
  Report Type: Spontaneous
  Country: JP (occurrence: JP)
  Receive Date: 20171124
  Receipt Date: 20171214
  Transmission Date: 20180321
  Serious: Yes (Other)
  Sender: FDA-Public Use
  Company Number: PHJP2017JP033931

PATIENT
  Age: 72 Year
  Sex: Male

DRUGS (12)
  1. AZOPT [Suspect]
     Active Substance: BRINZOLAMIDE
     Indication: GLAUCOMA
     Dosage: 10 MG, UNK
     Route: 047
     Dates: start: 201511, end: 201602
  2. PLETAAL [Concomitant]
     Active Substance: CILOSTAZOL
     Indication: DIABETES MELLITUS
  3. PLETAAL [Concomitant]
     Active Substance: CILOSTAZOL
     Indication: ARTERIAL OCCLUSIVE DISEASE
     Dosage: UNK
     Route: 065
  4. LUCENTIS [Suspect]
     Active Substance: RANIBIZUMAB
     Dosage: 0.05 MG, UNK
     Route: 031
     Dates: start: 201407, end: 201407
  5. LUCENTIS [Suspect]
     Active Substance: RANIBIZUMAB
     Indication: DIABETIC RETINAL OEDEMA
     Dosage: 0.05 MG, UNK
     Route: 031
     Dates: start: 201310
  6. LUCENTIS [Suspect]
     Active Substance: RANIBIZUMAB
     Dosage: 0.05 MG, UNK
     Route: 031
  7. LUCENTIS [Suspect]
     Active Substance: RANIBIZUMAB
     Dosage: 0.05 MG, UNK
     Route: 031
     Dates: start: 201408
  8. LUCENTIS [Suspect]
     Active Substance: RANIBIZUMAB
     Dosage: 0.05 MG, UNK
     Route: 031
  9. PLETAAL [Concomitant]
     Active Substance: CILOSTAZOL
     Indication: HYPERTENSION
  10. LUCENTIS [Suspect]
     Active Substance: RANIBIZUMAB
     Dosage: 0.05 MG, UNK
     Route: 031
  11. TRIAMCINOLONE [Suspect]
     Active Substance: TRIAMCINOLONE
     Indication: PRODUCT USED FOR UNKNOWN INDICATION
     Dosage: 20 MG, UNK
     Route: 065
  12. TAPCOM [Concomitant]
     Active Substance: TAFLUPROST\TIMOLOL
     Indication: GLAUCOMA
     Dosage: UNK
     Route: 047
     Dates: start: 201511

REACTIONS (9)
  - Macular oedema [Unknown]
  - Visual acuity reduced [Unknown]
  - Intraocular pressure increased [Unknown]
  - Glaucoma [Unknown]
  - Macular hole [Unknown]
  - Disease progression [Unknown]
  - Cataract [Unknown]
  - Visual field defect [Unknown]
  - Optic nerve cupping [Unknown]
